FAERS Safety Report 10697855 (Version 2)
Quarter: 2015Q1

REPORT INFORMATION
  Report Type: Spontaneous
  Country: JP (occurrence: None)
  Receive Date: 20150106
  Receipt Date: 20150209
  Transmission Date: 20150721
  Serious: Yes (Hospitalization, Other)
  Sender: FDA-Public Use
  Company Number: JP-20140357

PATIENT
  Age: 35 Year
  Sex: Female

DRUGS (2)
  1. LIPIODOL ULTRA-FLUIDE [Suspect]
     Active Substance: ETHIODIZED OIL
     Indication: HYSTEROSALPINGOGRAM
     Dates: start: 20130611, end: 20130611
  2. LEVOTHYROXINE (LEVOTHYROXINE) [Suspect]
     Active Substance: LEVOTHYROXINE
     Indication: PRODUCT USED FOR UNKNOWN INDICATION

REACTIONS (5)
  - Maternal exposure before pregnancy [None]
  - Labour induction [None]
  - Shortened cervix [None]
  - Uterine contractions abnormal [None]
  - Premature delivery [None]

NARRATIVE: CASE EVENT DATE: 20140311
